FAERS Safety Report 7376239-2 (Version None)
Quarter: 2011Q1

REPORT INFORMATION
  Report Type: 
  Country: None (occurrence: None)
  Receive Date: 20110325
  Receipt Date: 20110317
  Transmission Date: 20110831
  Serious: Yes (Hospitalization, Other)
  Sender: FDA-Public Use
  Company Number: ES-CEPHALON-2011000476

PATIENT
  Sex: Female

DRUGS (8)
  1. OMEPRAZOLE [Concomitant]
     Dates: start: 20100101
  2. LORAZEPAM [Concomitant]
     Dates: start: 20100101
  3. CALCIUM CARBONATE W COLECALCIFEROL [Concomitant]
     Dates: start: 20100101
  4. BENDAMUSTINE HCL [Suspect]
     Indication: CHRONIC LYMPHOCYTIC LEUKAEMIA
     Route: 042
     Dates: start: 20101201, end: 20101202
  5. PREDNISONA ALONGA [Concomitant]
     Dates: start: 20100930, end: 20110111
  6. VALTREX [Concomitant]
     Dates: start: 20100101
  7. BENDAMUSTINE HCL [Suspect]
     Route: 042
     Dates: start: 20101229, end: 20101230
  8. ALLOPURINOL [Concomitant]
     Dates: start: 20101201, end: 20101204

REACTIONS (7)
  - PYREXIA [None]
  - DIARRHOEA [None]
  - VOMITING [None]
  - PANCYTOPENIA [None]
  - RENAL FAILURE [None]
  - TUMOUR LYSIS SYNDROME [None]
  - NEUTROPENIA [None]
